FAERS Safety Report 21150027 (Version 4)
Quarter: 2022Q4

REPORT INFORMATION
  Report Type: Spontaneous
  Country: JP (occurrence: JP)
  Receive Date: 20220729
  Receipt Date: 20221029
  Transmission Date: 20230113
  Serious: Yes (Hospitalization)
  Sender: FDA-Public Use
  Company Number: JP-ABBVIE-22K-087-4485686-00

PATIENT
  Age: 89 Year
  Sex: Male
  Weight: 57 kg

DRUGS (5)
  1. GLECAPREVIR\PIBRENTASVIR [Suspect]
     Active Substance: GLECAPREVIR\PIBRENTASVIR
     Indication: Chronic hepatitis C
     Dosage: 3 TABLET
     Route: 048
     Dates: start: 20201111, end: 20210105
  2. CELECOXIB [Concomitant]
     Active Substance: CELECOXIB
     Indication: Intervertebral disc disorder
     Dosage: 200 MILLIGRAM
  3. DONEPEZIL HYDROCHLORIDE [Concomitant]
     Active Substance: DONEPEZIL HYDROCHLORIDE
     Indication: Dementia
     Route: 048
  4. TRAMADOL HYDROCHLORIDE [Concomitant]
     Active Substance: TRAMADOL HYDROCHLORIDE
     Indication: Product used for unknown indication
     Dosage: 50 MILLIGRAM
     Route: 048
  5. LIMAPROST [Concomitant]
     Active Substance: LIMAPROST
     Indication: Intervertebral disc disorder
     Dosage: TIME INTERVAL: 0.33333333 DAYS
     Route: 048

REACTIONS (1)
  - Diffuse large B-cell lymphoma [Recovering/Resolving]

NARRATIVE: CASE EVENT DATE: 20210306
